FAERS Safety Report 16343281 (Version 2)
Quarter: 2019Q3

REPORT INFORMATION
  Report Type: Report from Study
  Country: US (occurrence: US)
  Receive Date: 20190522
  Receipt Date: 20190718
  Transmission Date: 20191004
  Serious: Yes (Hospitalization)
  Sender: FDA-Public Use
  Company Number: US-ACTELION-A-NJ2019-188954

PATIENT
  Age: 74 Year
  Sex: Female
  Weight: 81.63 kg

DRUGS (2)
  1. ADEMPAS [Concomitant]
     Active Substance: RIOCIGUAT
  2. OPSUMIT [Suspect]
     Active Substance: MACITENTAN
     Indication: PULMONARY ARTERIAL HYPERTENSION
     Dosage: 10 MG, QD
     Route: 048

REACTIONS (9)
  - Gait disturbance [Unknown]
  - Rectal haemorrhage [Unknown]
  - Hospitalisation [Recovered/Resolved]
  - Choking [Unknown]
  - Unevaluable event [Unknown]
  - Cough [Unknown]
  - Oedema [Recovered/Resolved]
  - Peripheral swelling [Unknown]
  - Drug hypersensitivity [Unknown]

NARRATIVE: CASE EVENT DATE: 20190503
